FAERS Safety Report 17082020 (Version 1)
Quarter: 2019Q4

REPORT INFORMATION
  Report Type: Spontaneous
  Country: US (occurrence: US)
  Receive Date: 20191127
  Receipt Date: 20191127
  Transmission Date: 20200122
  Serious: No
  Sender: FDA-Public Use
  Company Number: US-GILEAD-2019-0439470

PATIENT
  Sex: Female

DRUGS (3)
  1. SOFOSBUVIR;VELPATASVIR [Suspect]
     Active Substance: SOFOSBUVIR\VELPATASVIR
     Indication: CHRONIC HEPATITIS C
     Dosage: 1 DOSAGE FORM, QD
     Route: 048
     Dates: start: 20191030
  2. ESTARYLLA [Concomitant]
     Active Substance: ETHINYL ESTRADIOL\NORGESTIMATE
  3. IBUPROFEN. [Concomitant]
     Active Substance: IBUPROFEN

REACTIONS (1)
  - Oligomenorrhoea [Recovered/Resolved]
